FAERS Safety Report 6878080-3 (Version None)
Quarter: 2010Q2

REPORT INFORMATION
  Report Type: 
  Country: None (occurrence: None)
  Receive Date: 20100616
  Receipt Date: 20100528
  Transmission Date: 20101027
  Serious: No
  Sender: FDA-Public Use
  Company Number: DSA_41569_2009

PATIENT
  Sex: Female
  Weight: 68.4932 kg

DRUGS (8)
  1. XENAZINE [Suspect]
     Indication: HUNTINGTON'S CHOREA
     Dosage: (12.5 MG TID ORAL), (12.5 MG BID ORAL), (DF)
     Route: 048
     Dates: start: 20090101
  2. XENAZINE [Suspect]
     Indication: HUNTINGTON'S CHOREA
     Dosage: (12.5 MG TID ORAL), (12.5 MG BID ORAL), (DF)
     Route: 048
     Dates: start: 20090601
  3. AMANTADINE HCL [Concomitant]
  4. CLONAZEPAM [Concomitant]
  5. CITALOPRAM [Concomitant]
  6. TOPAMAX [Concomitant]
  7. NAMENDA [Concomitant]
  8. BLACK COHOSH /01456805/ [Concomitant]

REACTIONS (2)
  - FALL [None]
  - SOMNOLENCE [None]
